FAERS Safety Report 4660470-0 (Version None)
Quarter: 2005Q2

REPORT INFORMATION
  Report Type: 
  Country: None (occurrence: None)
  Receive Date: 20050512
  Receipt Date: 20050506
  Transmission Date: 20051028
  Serious: Yes (Hospitalization)
  Sender: FDA-Public Use
  Company Number: GB-GLAXOSMITHKLINE-B0380093A

PATIENT
  Age: 5 Year
  Sex: Male

DRUGS (3)
  1. BECONASE [Suspect]
     Indication: ASTHMA
     Dosage: 200MCG FOUR TIMES PER DAY
     Route: 055
     Dates: start: 20030101, end: 20030401
  2. VENTOLIN HFA [Suspect]
     Indication: ASTHMA
     Dosage: 50MCG TEN TIMES PER DAY
     Route: 055
     Dates: start: 20030101, end: 20030401
  3. PREDNISOLONE [Concomitant]
     Route: 065

REACTIONS (1)
  - DIABETES MELLITUS INSULIN-DEPENDENT [None]
